FAERS Safety Report 24670616 (Version 1)
Quarter: 2024Q4

REPORT INFORMATION
  Report Type: Spontaneous
  Country: BG (occurrence: BG)
  Receive Date: 20241127
  Receipt Date: 20241127
  Transmission Date: 20250114
  Serious: Yes (Death, Other)
  Sender: INCYTE
  Company Number: BG-INCYTE CORPORATION-2024IN012536

PATIENT

DRUGS (2)
  1. TAFASITAMAB [Suspect]
     Active Substance: TAFASITAMAB
     Indication: Diffuse large B-cell lymphoma
     Dosage: 12 MILLIGRAM/KILOGRAM FOR 1,4,8,15 AND 22 DAY OF CYCLE 1
     Route: 042
     Dates: start: 202409, end: 202410
  2. LENALIDOMIDE [Concomitant]
     Active Substance: LENALIDOMIDE
     Indication: Diffuse large B-cell lymphoma
     Dosage: 25 MILLIGRAM, QD ON DAYS 1 TO 21
     Route: 048
     Dates: start: 202409, end: 202410

REACTIONS (1)
  - Death [Fatal]
